FAERS Safety Report 8874053 (Version 4)
Quarter: 2012Q4

REPORT INFORMATION
  Report Type: 
  Country: US (occurrence: US)
  Receive Date: 20121031
  Receipt Date: 20121221
  Transmission Date: 20130627
  Serious: Yes (Hospitalization, Disabling, Other)
  Sender: FDA-Public Use
  Company Number: US-009507513-1210USA011476

PATIENT
  Age: 65 None
  Sex: Male
  Weight: 93.88 kg

DRUGS (13)
  1. SYLATRON [Suspect]
     Indication: MALIGNANT MELANOMA
     Dosage: 296 Microgram, qw
     Route: 058
     Dates: start: 20121012
  2. SYLATRON [Suspect]
     Dosage: UNK
     Route: 058
     Dates: start: 20120914
  3. INTERFERON ALFA-2B [Suspect]
     Dosage: high dose intron
     Dates: start: 20120813
  4. AFLURIA [Suspect]
     Indication: PROPHYLAXIS
     Dates: start: 20121008, end: 20121008
  5. ACTOS [Concomitant]
     Dosage: 45 mg, UNK
  6. AMARYL [Concomitant]
     Dosage: 2 mg, UNK
  7. CALCIUM (UNSPECIFIED) (+) VITAMIN D (UNSPECIFIED) [Concomitant]
     Dosage: calcium 500+d 500 mg (1250 mg)-200 unit
  8. CLARINEX [Concomitant]
     Dosage: 5 mg, UNK
  9. METFORMIN [Concomitant]
     Dosage: 1000 mg
  10. ZOCOR [Concomitant]
     Dosage: 40 mg, UNK
  11. ACETAMINOPHEN [Concomitant]
     Dosage: 650 mg, UNK
  12. BENZONATATE [Concomitant]
     Dosage: 100 mg, UNK
  13. COUMADIN [Concomitant]

REACTIONS (4)
  - Drug eruption [Recovered/Resolved]
  - Malignant melanoma [Unknown]
  - Infection [Recovering/Resolving]
  - Deep vein thrombosis [Unknown]
